FAERS Safety Report 23430667 (Version 2)
Quarter: 2024Q2

REPORT INFORMATION
  Report Type: Report from Study
  Country: GB (occurrence: GB)
  Receive Date: 20240123
  Receipt Date: 20240623
  Transmission Date: 20240716
  Serious: Yes (Other)
  Sender: FDA-Public Use
  Company Number: GB-002147023-NVSC2023GB009670

PATIENT
  Sex: Female

DRUGS (3)
  1. MAYZENT [Suspect]
     Active Substance: SIPONIMOD
     Indication: Secondary progressive multiple sclerosis
     Dosage: 2 MG, QD (28 TABLET 2 X 14 TABLETS)
     Route: 048
     Dates: start: 20230113
  2. MAYZENT [Suspect]
     Active Substance: SIPONIMOD
     Indication: Multiple sclerosis
  3. PREGABALIN [Concomitant]
     Active Substance: PREGABALIN
     Indication: Product used for unknown indication
     Route: 065

REACTIONS (9)
  - Lower respiratory tract infection [Unknown]
  - Visual impairment [Unknown]
  - Visual field defect [Unknown]
  - Fall [Unknown]
  - Contusion [Unknown]
  - Product distribution issue [Unknown]
  - Incorrect dose administered [Unknown]
  - Abdominal distension [Unknown]
  - Splenomegaly [Unknown]

NARRATIVE: CASE EVENT DATE: 20230113
